FAERS Safety Report 15344544 (Version 2)
Quarter: 2018Q4

REPORT INFORMATION
  Report Type: Spontaneous
  Country: US (occurrence: US)
  Receive Date: 20180903
  Receipt Date: 20181121
  Transmission Date: 20190204
  Serious: Yes (Other)
  Sender: FDA-Public Use
  Company Number: US-SA-2018SA242719

PATIENT
  Age: 40 Year
  Sex: Female
  Weight: 103 kg

DRUGS (6)
  1. TAXOL [Concomitant]
     Active Substance: PACLITAXEL
  2. PARAPLATIN [Concomitant]
     Active Substance: CARBOPLATIN
  3. METFORMIN [Concomitant]
     Active Substance: METFORMIN HYDROCHLORIDE
  4. TAXOTERE [Suspect]
     Active Substance: DOCETAXEL
     Dosage: 131 MG, Q3W
     Dates: start: 20130410, end: 20130410
  5. TAXOTERE [Suspect]
     Active Substance: DOCETAXEL
     Indication: UTERINE CANCER
     Dosage: 131 MG, Q3W
     Route: 042
     Dates: start: 20130109, end: 20130109
  6. LANTUS [Concomitant]
     Active Substance: INSULIN GLARGINE
     Dosage: UNK
     Dates: start: 2005

REACTIONS (2)
  - Alopecia [Recovering/Resolving]
  - Psychological trauma [Unknown]

NARRATIVE: CASE EVENT DATE: 201308
